FAERS Safety Report 20987001 (Version 1)
Quarter: 2022Q2

REPORT INFORMATION
  Report Type: Spontaneous
  Country: US (occurrence: None)
  Receive Date: 20220618
  Receipt Date: 20220618
  Transmission Date: 20220720
  Serious: Yes (Disabling, Other)
  Sender: FDA-Public Use
  Company Number: None

PATIENT
  Age: 58 Year
  Sex: Female
  Weight: 77.4 kg

DRUGS (16)
  1. BUPRENORPHINE AND NALOXONE SUBLINGUAL [Suspect]
     Active Substance: BUPRENORPHINE HYDROCHLORIDE\NALOXONE HYDROCHLORIDE
     Indication: Drug dependence
     Dosage: OTHER QUANTITY : 2.5 70 FILMS PER MONTH;?FREQUENCY : 3 TIMES A DAY;?
     Route: 060
  2. Synthroid 125 mcg [Concomitant]
  3. GABAPENTIN [Concomitant]
     Active Substance: GABAPENTIN
  4. TRAZODONE [Concomitant]
     Active Substance: TRAZODONE HYDROCHLORIDE
  5. Colonipin [Concomitant]
  6. SUBOXONE [Concomitant]
     Active Substance: BUPRENORPHINE HYDROCHLORIDE\NALOXONE HYDROCHLORIDE
  7. IBUPROFEN [Concomitant]
     Active Substance: IBUPROFEN
  8. MAGNESIUM [Concomitant]
     Active Substance: MAGNESIUM
  9. LYSINE [Concomitant]
     Active Substance: LYSINE
  10. VITAMIN B12 [Concomitant]
     Active Substance: CYANOCOBALAMIN
  11. BIOTIN [Concomitant]
     Active Substance: BIOTIN
  12. collagen powder [Concomitant]
  13. PROBIOTICS NOS [Concomitant]
     Active Substance: PROBIOTICS NOS
  14. CALCIUM [Concomitant]
     Active Substance: CALCIUM
  15. VITAMIN D3 [Concomitant]
     Active Substance: CHOLECALCIFEROL
  16. turmeric with bioperine [Concomitant]

REACTIONS (2)
  - Drug withdrawal syndrome [None]
  - Tooth loss [None]

NARRATIVE: CASE EVENT DATE: 20140401
